FAERS Safety Report 19880527 (Version 1)
Quarter: 2021Q3

REPORT INFORMATION
  Report Type: Report from Study
  Country: CA (occurrence: CA)
  Receive Date: 20210924
  Receipt Date: 20210924
  Transmission Date: 20211014
  Serious: Yes (Hospitalization, Other)
  Sender: FDA-Public Use
  Company Number: CA-OTSUKA-2021_012274

PATIENT
  Sex: Male

DRUGS (2)
  1. CEDAZURIDINE AND DECITABINE [Suspect]
     Active Substance: CEDAZURIDINE\DECITABINE
     Dosage: UNK, QD (1?4 DAYS EVERY 28 DAY CYCLE)
     Route: 065
  2. CEDAZURIDINE AND DECITABINE [Suspect]
     Active Substance: CEDAZURIDINE\DECITABINE
     Indication: MYELODYSPLASTIC SYNDROME
     Dosage: (35 MG OF DECITABINE AND 100 MG OF CEDAZURIDINE)
     Route: 065
     Dates: start: 20210322

REACTIONS (6)
  - Vomiting [Unknown]
  - Sepsis [Unknown]
  - Device malfunction [Unknown]
  - Stent placement [Unknown]
  - Blood product transfusion dependent [Unknown]
  - Packed red blood cell transfusion [Unknown]
